FAERS Safety Report 8055540-3 (Version None)
Quarter: 2012Q1

REPORT INFORMATION
  Report Type: 
  Country: None (occurrence: None)
  Receive Date: 20120119
  Receipt Date: 20120116
  Transmission Date: 20120608
  Serious: Yes (Other)
  Sender: FDA-Public Use
  Company Number: US-BAYER-2011-070365

PATIENT
  Age: 34 Year
  Sex: Female
  Weight: 53.515 kg

DRUGS (1)
  1. MIRENA [Suspect]
     Indication: CONTRACEPTION
     Dosage: 20 MCG/24HR, CONT
     Route: 015
     Dates: start: 20110726, end: 20110808

REACTIONS (5)
  - UTERINE PERFORATION [None]
  - ABDOMINAL PAIN [None]
  - DEVICE DISLOCATION [None]
  - VAGINAL HAEMORRHAGE [None]
  - POST PROCEDURAL DISCOMFORT [None]
